FAERS Safety Report 8577473-6 (Version None)
Quarter: 2012Q3

REPORT INFORMATION
  Report Type: 
  Country: None (occurrence: None)
  Receive Date: 20120807
  Receipt Date: 20120802
  Transmission Date: 20120928
  Serious: No
  Sender: FDA-Public Use
  Company Number: US-009507513-1103USA03597

PATIENT

DRUGS (3)
  1. PROSCAR [Suspect]
     Indication: ALOPECIA
     Dosage: 5 MG, UNK
     Route: 048
     Dates: start: 20050901
  2. PROPECIA [Suspect]
     Indication: ALOPECIA
  3. PROPECIA [Suspect]
     Indication: ANDROGENETIC ALOPECIA
     Dosage: 1 MG, UNK
     Route: 048

REACTIONS (32)
  - HERPES SIMPLEX [None]
  - SLEEP DISORDER [None]
  - ANXIETY [None]
  - ERECTILE DYSFUNCTION [None]
  - CONTUSION [None]
  - VIRAL INFECTION [None]
  - FUNCTIONAL GASTROINTESTINAL DISORDER [None]
  - FATIGUE [None]
  - BURNS SECOND DEGREE [None]
  - PANIC ATTACK [None]
  - SUICIDAL IDEATION [None]
  - GASTROOESOPHAGEAL REFLUX DISEASE [None]
  - DIARRHOEA [None]
  - ENTEROCOLITIS [None]
  - ALCOHOL ABUSE [None]
  - HYPOTHYROIDISM [None]
  - BLOOD ALCOHOL INCREASED [None]
  - HYPERTENSION [None]
  - SEXUAL DYSFUNCTION [None]
  - LIBIDO DECREASED [None]
  - BLOOD CHOLESTEROL INCREASED [None]
  - AXILLARY MASS [None]
  - BLOOD TESTOSTERONE DECREASED [None]
  - RHINITIS ALLERGIC [None]
  - UPPER-AIRWAY COUGH SYNDROME [None]
  - PREMATURE EJACULATION [None]
  - HEADACHE [None]
  - FEAR [None]
  - PARTNER STRESS [None]
  - INTENTIONAL DRUG MISUSE [None]
  - VOMITING [None]
  - HYPERLIPIDAEMIA [None]
